FAERS Safety Report 7576651-2 (Version None)
Quarter: 2011Q2

REPORT INFORMATION
  Report Type: 
  Country: None (occurrence: None)
  Receive Date: 20110628
  Receipt Date: 20110531
  Transmission Date: 20111010
  Serious: Yes (Disabling)
  Sender: FDA-Public Use
  Company Number: US-BAYER-2011-003497

PATIENT
  Age: 23 Year
  Sex: Female

DRUGS (3)
  1. NSAID'S [Concomitant]
  2. YASMIN [Suspect]
     Indication: ACNE
     Dosage: UNK
     Dates: start: 20070101, end: 20091001
  3. YAZ [Suspect]
     Indication: ACNE
     Dosage: UNK
     Dates: start: 20070101, end: 20071001

REACTIONS (7)
  - DIZZINESS [None]
  - HYPERTRICHOSIS [None]
  - NAUSEA [None]
  - CEREBROVASCULAR ACCIDENT [None]
  - BRAIN OEDEMA [None]
  - PAIN [None]
  - BALANCE DISORDER [None]
